FAERS Safety Report 18359831 (Version 1)
Quarter: 2020Q4

REPORT INFORMATION
  Report Type: Spontaneous
  Country: PL (occurrence: PL)
  Receive Date: 20201008
  Receipt Date: 20201008
  Transmission Date: 20210114
  Serious: Yes (Hospitalization, Other)
  Sender: FDA-Public Use
  Company Number: PL-LUPIN PHARMACEUTICALS INC.-2020-06868

PATIENT
  Age: 78 Year
  Sex: Female

DRUGS (1)
  1. MELOXICAM. [Suspect]
     Active Substance: MELOXICAM
     Indication: SPINAL PAIN
     Dosage: UNK (INJECTION)
     Route: 030

REACTIONS (1)
  - Pyoderma gangrenosum [Recovering/Resolving]
